FAERS Safety Report 9939226 (Version 1)
Quarter: 2014Q1

REPORT INFORMATION
  Report Type: Report from Study
  Country: US (occurrence: US)
  Receive Date: 20140303
  Receipt Date: 20140303
  Transmission Date: 20141002
  Serious: No
  Sender: FDA-Public Use
  Company Number: US-ABBVIE-13P-163-1038436-00

PATIENT
  Age: 23 Year
  Sex: Female

DRUGS (1)
  1. HUMIRA [Suspect]
     Indication: COLITIS ULCERATIVE
     Dosage: ULCERATIVE COLITIS STARTER PACK
     Dates: start: 20130117, end: 20130117

REACTIONS (5)
  - Hyperventilation [Recovered/Resolved]
  - Anxiety [Recovered/Resolved]
  - Hypoaesthesia [Recovered/Resolved]
  - Hypoaesthesia [Recovered/Resolved]
  - Injection site pain [Not Recovered/Not Resolved]
